FAERS Safety Report 8380494-X (Version None)
Quarter: 2012Q2

REPORT INFORMATION
  Report Type: 
  Country: None (occurrence: None)
  Receive Date: 20120523
  Receipt Date: 20120516
  Transmission Date: 20120825
  Serious: Yes (Other)
  Sender: FDA-Public Use
  Company Number: JP-GLAXOSMITHKLINE-B0802177A

PATIENT
  Sex: Male

DRUGS (5)
  1. MUCODYNE [Concomitant]
     Indication: BRONCHITIS CHRONIC
     Dosage: 1500MG PER DAY
     Route: 048
     Dates: start: 20120216
  2. SPIRIVA [Concomitant]
     Indication: CHRONIC OBSTRUCTIVE PULMONARY DISEASE
     Dosage: 18MCG PER DAY
     Route: 055
     Dates: start: 20120216
  3. FUROSEMIDE [Concomitant]
     Indication: HYPERTENSION
     Dosage: 40MG PER DAY
     Route: 048
     Dates: start: 20120216
  4. CANDESARTAN CILEXETIL [Concomitant]
     Indication: HYPERTENSION
     Dosage: 4MG PER DAY
     Route: 048
     Dates: start: 20120216
  5. FLUTICASONE PROPIONATE/SALMETEROL [Suspect]
     Indication: CHRONIC OBSTRUCTIVE PULMONARY DISEASE
     Dosage: 500MCG PER DAY
     Route: 055
     Dates: start: 20120216

REACTIONS (2)
  - OROPHARYNGEAL DISCOMFORT [None]
  - OESOPHAGEAL CANDIDIASIS [None]
